FAERS Safety Report 22099584 (Version 1)
Quarter: 2023Q1

REPORT INFORMATION
  Report Type: Spontaneous
  Country: TR (occurrence: TR)
  Receive Date: 20230315
  Receipt Date: 20230315
  Transmission Date: 20230417
  Serious: Yes (Hospitalization)
  Sender: FDA-Public Use
  Company Number: TR-BAYER-2022A064997

PATIENT
  Age: 32 Year
  Sex: Male

DRUGS (5)
  1. CYPROTERONE ACETATE [Suspect]
     Active Substance: CYPROTERONE ACETATE
     Indication: Transgender hormonal therapy
     Dosage: UNK
     Route: 048
     Dates: start: 2021
  2. CYPROTERONE ACETATE [Suspect]
     Active Substance: CYPROTERONE ACETATE
     Indication: Transgender hormonal therapy
     Dosage: UNK
     Route: 048
     Dates: start: 202202, end: 20230228
  3. ANGELIQ [Suspect]
     Active Substance: DROSPIRENONE\ESTRADIOL
     Indication: Transgender hormonal therapy
     Dosage: UNK
     Route: 048
     Dates: start: 202202
  4. DIANE (CYPROTERONE ACETATE\ETHINYL ESTRADIOL) [Suspect]
     Active Substance: CYPROTERONE ACETATE\ETHINYL ESTRADIOL
     Indication: Transgender hormonal therapy
     Dosage: UNK
     Dates: start: 202202
  5. ESTRADIOL [Concomitant]
     Active Substance: ESTRADIOL

REACTIONS (12)
  - Vascular occlusion [None]
  - Hypoaesthesia [None]
  - Headache [Not Recovered/Not Resolved]
  - Sperm concentration zero [Not Recovered/Not Resolved]
  - Memory impairment [Not Recovered/Not Resolved]
  - Bradyphrenia [Not Recovered/Not Resolved]
  - Abdominal pain upper [Recovered/Resolved]
  - Painful erection [Not Recovered/Not Resolved]
  - Weight decreased [None]
  - Off label use [None]
  - Off label use [None]
  - Off label use [None]

NARRATIVE: CASE EVENT DATE: 20210901
